FAERS Safety Report 6594596-1 (Version None)
Quarter: 2010Q1

REPORT INFORMATION
  Report Type: 
  Country: None (occurrence: None)
  Receive Date: 20100222
  Receipt Date: 20090105
  Transmission Date: 20100710
  Serious: Yes (Disabling)
  Sender: FDA-Public Use
  Company Number: US-BRISTOL-MYERS SQUIBB COMPANY-14445241

PATIENT
  Age: 65 Year
  Sex: Male

DRUGS (2)
  1. TAXOL [Suspect]
     Indication: LUNG NEOPLASM MALIGNANT
     Dosage: 100MG, FIRST INFUSION TAKEN ON 15OCT08.
     Route: 042
     Dates: start: 20081126, end: 20081126
  2. CARBOPLATIN [Suspect]
     Indication: LUNG NEOPLASM MALIGNANT
     Dosage: AUC=2, FIRST INFUSION TAKEN ON 15OCT08.
     Route: 042
     Dates: start: 20081126, end: 20081126

REACTIONS (1)
  - OPTIC NEURITIS [None]
